FAERS Safety Report 17568554 (Version 1)
Quarter: 2020Q1

REPORT INFORMATION
  Report Type: Report from Study
  Country: US (occurrence: US)
  Receive Date: 20200320
  Receipt Date: 20200320
  Transmission Date: 20200409
  Serious: Yes (Other)
  Sender: FDA-Public Use
  Company Number: US-BIOGEN-2019BI00776014

PATIENT
  Sex: Male
  Weight: 146 kg

DRUGS (3)
  1. TECFIDERA [Suspect]
     Active Substance: DIMETHYL FUMARATE
     Dosage: MAINTENANCE DOSE
     Route: 048
     Dates: start: 20180122
  2. TECFIDERA [Suspect]
     Active Substance: DIMETHYL FUMARATE
     Route: 065
     Dates: start: 20190917, end: 20200206
  3. TECFIDERA [Suspect]
     Active Substance: DIMETHYL FUMARATE
     Indication: MULTIPLE SCLEROSIS
     Dosage: STARTING DOSE
     Route: 048
     Dates: start: 20180115, end: 20180121

REACTIONS (19)
  - Muscle spasms [Unknown]
  - Pain [Unknown]
  - Paraesthesia [Unknown]
  - Back pain [Unknown]
  - Drug dependence [Unknown]
  - Dizziness [Unknown]
  - Migraine [Unknown]
  - Dyspepsia [Unknown]
  - Headache [Unknown]
  - Fatigue [Unknown]
  - Hypoaesthesia [Unknown]
  - Musculoskeletal pain [Unknown]
  - Balance disorder [Unknown]
  - Memory impairment [Unknown]
  - Drug intolerance [Unknown]
  - Asthenia [Unknown]
  - Gastric disorder [Unknown]
  - Relapsing-remitting multiple sclerosis [Unknown]
  - Osteoarthritis [Unknown]
